FAERS Safety Report 9771315 (Version 2)
Quarter: 2013Q4

REPORT INFORMATION
  Report Type: Spontaneous
  Country: FR (occurrence: FR)
  Receive Date: 20131218
  Receipt Date: 20131218
  Transmission Date: 20140711
  Serious: Yes (Hospitalization)
  Sender: FDA-Public Use
  Company Number: PHHY2013FR122980

PATIENT
  Age: 57 Year
  Sex: Female

DRUGS (4)
  1. TEGRETOL [Suspect]
     Indication: EPILEPSY
     Dosage: 200 MG, BID
     Route: 048
     Dates: start: 20130909
  2. TEGRETOL [Suspect]
     Dosage: TEGRETOL LP DOSAGE WAS PROGRESSIVELY DECREASED WITHIN 5 DAYS
     Route: 048
     Dates: end: 20131004
  3. KEPPRA [Concomitant]
     Indication: EPILEPSY
     Dosage: 750 MG, BID
     Route: 048
     Dates: start: 201301
  4. RHINOCORT (BUDESONIDE) [Concomitant]
     Indication: NASAL POLYPS
     Dosage: 2 DF, UNK
     Route: 045

REACTIONS (8)
  - Drug reaction with eosinophilia and systemic symptoms [Recovering/Resolving]
  - Rash macular [Recovering/Resolving]
  - Pyrexia [Unknown]
  - Eosinophilia [Unknown]
  - Influenza like illness [Unknown]
  - Malaise [Unknown]
  - Swelling [Unknown]
  - Erythema [Unknown]
